FAERS Safety Report 8449761-5 (Version None)
Quarter: 2012Q2

REPORT INFORMATION
  Report Type: 
  Country: None (occurrence: None)
  Receive Date: 20120613
  Receipt Date: 20120531
  Transmission Date: 20120825
  Serious: Yes (Other)
  Sender: FDA-Public Use
  Company Number: NSR_00565_2012

PATIENT
  Sex: Male

DRUGS (4)
  1. METOCLOPRAMIDE [Suspect]
     Indication: GASTROOESOPHAGEAL REFLUX DISEASE
     Dosage: 10 MG 1X INTRAVENOUS/5 MINUTES
     Route: 042
  2. METOCLOPRAMIDE [Suspect]
     Indication: BODY MASS INDEX
     Dosage: 10 MG 1X INTRAVENOUS/5 MINUTES
     Route: 042
  3. ACE (INHIBITORS) [Concomitant]
  4. FAMOTIDINE [Concomitant]

REACTIONS (7)
  - BLOOD GLUCOSE INCREASED [None]
  - RESTLESSNESS [None]
  - FLUSHING [None]
  - BLOOD PRESSURE INCREASED [None]
  - HYPERHIDROSIS [None]
  - FEELING HOT [None]
  - AGITATION [None]
